FAERS Safety Report 4959649-X (Version None)
Quarter: 2006Q1

REPORT INFORMATION
  Report Type: 
  Country: None (occurrence: None)
  Receive Date: 20060331
  Receipt Date: 20060325
  Transmission Date: 20060701
  Serious: Yes (Life-Threatening)
  Sender: FDA-Public Use
  Company Number: GB-ROCHE-442331

PATIENT
  Age: 66 Year
  Sex: Female
  Weight: 95.2 kg

DRUGS (1)
  1. XENICAL [Suspect]
     Indication: OBESITY
     Route: 048
     Dates: start: 20051101, end: 20060201

REACTIONS (1)
  - CHEST PAIN [None]
